FAERS Safety Report 18148887 (Version 2)
Quarter: 2020Q4

REPORT INFORMATION
  Report Type: Spontaneous
  Country: US (occurrence: US)
  Receive Date: 20200814
  Receipt Date: 20201029
  Transmission Date: 20210113
  Serious: No
  Sender: FDA-Public Use
  Company Number: US-EYEPOINT PHARMACEUTICALS, INC.-US-EYP-20-00361

PATIENT
  Age: 68 Year
  Sex: Female

DRUGS (1)
  1. DEXYCU [Suspect]
     Active Substance: DEXAMETHASONE
     Indication: PRODUCT USED FOR UNKNOWN INDICATION
     Route: 031
     Dates: start: 20200713, end: 20200713

REACTIONS (6)
  - Corneal oedema [Recovered/Resolved]
  - Off label use [Unknown]
  - Medical device removal [Unknown]
  - Device dislocation [Recovered/Resolved]
  - Application site fibrosis [Recovered/Resolved]
  - Iritis [Unknown]

NARRATIVE: CASE EVENT DATE: 20200713
